FAERS Safety Report 9430020 (Version 1)
Quarter: 2013Q3

REPORT INFORMATION
  Report Type: Report from Study
  Country: US (occurrence: US)
  Receive Date: 20130730
  Receipt Date: 20130730
  Transmission Date: 20140515
  Serious: Yes (Other)
  Sender: FDA-Public Use
  Company Number: US-JNJFOC-20130713949

PATIENT
  Sex: Female
  Weight: 66.68 kg

DRUGS (4)
  1. REMICADE [Suspect]
     Indication: RHEUMATOID ARTHRITIS
     Route: 042
     Dates: start: 201306
  2. VICODIN [Concomitant]
     Indication: PAIN
     Route: 065
     Dates: start: 201212
  3. PREDNISONE [Concomitant]
     Indication: PAIN
     Route: 065
     Dates: start: 2013
  4. METHOTREXATE [Concomitant]
     Route: 065
     Dates: start: 2013

REACTIONS (2)
  - Haemorrhoids [Unknown]
  - Drug ineffective [Not Recovered/Not Resolved]
